FAERS Safety Report 10156467 (Version 2)
Quarter: 2014Q2

REPORT INFORMATION
  Report Type: Spontaneous
  Country: US (occurrence: None)
  Receive Date: 20140429
  Receipt Date: 20140501
  Transmission Date: 20141212
  Serious: Yes (Life-Threatening)
  Sender: FDA-Public Use
  Company Number: 003-172

PATIENT
  Age: 16 Year
  Sex: Male

DRUGS (1)
  1. CROFAB [Suspect]
     Indication: SNAKE BITE
     Dosage: 8 VIALS TOTAL
     Dates: start: 20140416, end: 20140417

REACTIONS (6)
  - Hypotension [None]
  - Heart rate decreased [None]
  - Peripheral swelling [None]
  - Prothrombin time prolonged [None]
  - International normalised ratio increased [None]
  - White blood cell count increased [None]
